FAERS Safety Report 12991462 (Version 1)
Quarter: 2016Q4

REPORT INFORMATION
  Report Type: Spontaneous
  Country: US (occurrence: US)
  Receive Date: 20161201
  Receipt Date: 20161201
  Transmission Date: 20170207
  Serious: No
  Sender: FDA-Public Use
  Company Number: US-ENDO PHARMACEUTICALS INC.-2015-005014

PATIENT
  Age: 64 Year
  Sex: Female
  Weight: 54.48 kg

DRUGS (3)
  1. ALPRAZOLAM TABLETS 0.25 MG [Suspect]
     Active Substance: ALPRAZOLAM
     Indication: ANXIETY
     Route: 048
     Dates: start: 20151210, end: 20151210
  2. ALPRAZOLAM TABLETS 0.25 MG [Suspect]
     Active Substance: ALPRAZOLAM
     Indication: SLEEP DISORDER
  3. MICARDIS [Concomitant]
     Active Substance: TELMISARTAN
     Indication: HYPERTENSION

REACTIONS (5)
  - Chromaturia [Recovered/Resolved]
  - Feeling abnormal [Recovered/Resolved]
  - Dysuria [Recovered/Resolved]
  - Off label use [Recovered/Resolved]
  - Bladder spasm [Recovered/Resolved]

NARRATIVE: CASE EVENT DATE: 20151210
